FAERS Safety Report 21156890 (Version 7)
Quarter: 2022Q4

REPORT INFORMATION
  Report Type: Report from Study
  Country: US (occurrence: US)
  Receive Date: 20220801
  Receipt Date: 20221020
  Transmission Date: 20230112
  Serious: No
  Sender: FDA-Public Use
  Company Number: US-NOVARTISTESTPH-NVSC2022US172987

PATIENT
  Sex: Female
  Weight: 59.864 kg

DRUGS (4)
  1. TREPROSTINIL [Suspect]
     Active Substance: TREPROSTINIL
     Indication: Pulmonary arterial hypertension
     Dosage: 23 UNK  (NG/ KG/ MIN, CONTINUOUS)
     Route: 058
     Dates: start: 20220628
  2. WERIFRIN [Concomitant]
     Indication: Product used for unknown indication
     Dosage: UNK
     Route: 065
  3. SILDENAFIL CITRATE [Concomitant]
     Active Substance: SILDENAFIL CITRATE
     Indication: Product used for unknown indication
     Dosage: UNK
     Route: 065
  4. REMODULIN [Concomitant]
     Active Substance: TREPROSTINIL
     Indication: Product used for unknown indication
     Route: 065

REACTIONS (16)
  - Infusion site haemorrhage [Unknown]
  - Flatulence [Unknown]
  - Skin irritation [Unknown]
  - Chest discomfort [Unknown]
  - Quality of life decreased [Unknown]
  - Infusion site irritation [Unknown]
  - Injection site discomfort [Unknown]
  - Infusion site extravasation [Unknown]
  - Headache [Unknown]
  - Fatigue [Unknown]
  - Pruritus [Unknown]
  - Injection site pain [Unknown]
  - Dyspnoea [Unknown]
  - Oedema [Unknown]
  - Infusion site pain [Unknown]
  - Device issue [Unknown]
